FAERS Safety Report 8515909-7 (Version None)
Quarter: 2012Q3

REPORT INFORMATION
  Report Type: 
  Country: None (occurrence: None)
  Receive Date: 20120717
  Receipt Date: 20120703
  Transmission Date: 20120928
  Serious: Yes (Other)
  Sender: FDA-Public Use
  Company Number: CA-MYLANLABS-2012S1013550

PATIENT
  Age: 50 Year
  Sex: Female

DRUGS (2)
  1. FENTANYL-100 [Suspect]
     Indication: INTENTIONAL DRUG MISUSE
     Route: 055
  2. FENTANYL-100 [Suspect]
     Indication: PAIN
     Route: 055

REACTIONS (4)
  - INCORRECT ROUTE OF DRUG ADMINISTRATION [None]
  - ALVEOLAR PROTEINOSIS [None]
  - INTENTIONAL DRUG MISUSE [None]
  - INTERSTITIAL LUNG DISEASE [None]
